FAERS Safety Report 7507507-9 (Version None)
Quarter: 2011Q2

REPORT INFORMATION
  Report Type: 
  Country: None (occurrence: None)
  Receive Date: 20110526
  Receipt Date: 20100621
  Transmission Date: 20111010
  Serious: Yes (Hospitalization)
  Sender: FDA-Public Use
  Company Number: US-MYLANLABS-2010S1009471

PATIENT
  Age: 84 Year
  Sex: Female

DRUGS (10)
  1. LISINOPRIL [Concomitant]
     Route: 048
     Dates: start: 20080101
  2. CO Q10 [Concomitant]
  3. ZOLPIDEM [Suspect]
     Indication: INSOMNIA
     Route: 048
     Dates: start: 20090101, end: 20090901
  4. ATENOLOL [Concomitant]
     Route: 048
  5. SPIRONOLACTONE [Concomitant]
     Route: 048
     Dates: start: 20080101
  6. VITAMIN B [Concomitant]
  7. SELENIUM [Concomitant]
  8. IPRATROPIUM BROMIDE [Concomitant]
     Route: 045
  9. CALCIUM +D3 [Concomitant]
  10. LUTEIN [Concomitant]

REACTIONS (1)
  - AMNESIA [None]
